FAERS Safety Report 11232521 (Version 1)
Quarter: 2015Q3

REPORT INFORMATION
  Report Type: Report from Study
  Country: GB (occurrence: GB)
  Receive Date: 20150701
  Receipt Date: 20150701
  Transmission Date: 20151125
  Serious: Yes (Death, Other)
  Sender: FDA-Public Use
  Company Number: GB-GLAXOSMITHKLINE-GB2015GSK093655

PATIENT

DRUGS (3)
  1. CARBOPLATIN. [Suspect]
     Active Substance: CARBOPLATIN
     Indication: GERM CELL NEOPLASM
     Dosage: UNK, CYC
  2. TOPOTECAN HYDROCHLORIDE. [Suspect]
     Active Substance: TOPOTECAN HYDROCHLORIDE
     Indication: GERM CELL NEOPLASM
     Dosage: 10 MG/M2 ON DAY 1,2,3, CYC
  3. THIOTEPA. [Suspect]
     Active Substance: THIOTEPA
     Indication: GERM CELL NEOPLASM
     Dosage: 125 MG/M2, CYC
     Route: 042

REACTIONS (2)
  - Hepatic failure [Fatal]
  - Fungal infection [Fatal]
